FAERS Safety Report 7295715-4 (Version None)
Quarter: 2011Q1

REPORT INFORMATION
  Report Type: 
  Country: None (occurrence: None)
  Receive Date: 20110216
  Receipt Date: 20101215
  Transmission Date: 20110831
  Serious: No
  Sender: FDA-Public Use
  Company Number: US-ABBOTT-10P-163-0692214-00

PATIENT
  Sex: Female
  Weight: 68.1 kg

DRUGS (5)
  1. FISH OIL [Concomitant]
     Indication: SUPPLEMENTATION THERAPY
  2. MELOXICAM [Concomitant]
     Indication: ARTHRALGIA
  3. CITRICAL D [Concomitant]
     Indication: MINERAL SUPPLEMENTATION
  4. FLONASE [Concomitant]
     Indication: SINUS DISORDER
  5. SIMCOR [Suspect]
     Indication: BLOOD CHOLESTEROL INCREASED
     Dates: start: 20101123

REACTIONS (5)
  - MUSCULOSKELETAL STIFFNESS [None]
  - SKIN BURNING SENSATION [None]
  - ARTHRALGIA [None]
  - PAIN IN EXTREMITY [None]
  - GROIN PAIN [None]
